FAERS Safety Report 14283695 (Version 2)
Quarter: 2018Q1

REPORT INFORMATION
  Report Type: Spontaneous
  Country: US (occurrence: US)
  Receive Date: 20171213
  Receipt Date: 20180115
  Transmission Date: 20180509
  Serious: Yes (Hospitalization)
  Sender: FDA-Public Use
  Company Number: US-BEH-2017085828

PATIENT
  Sex: Male
  Weight: 80.73 kg

DRUGS (26)
  1. HIZENTRA [Suspect]
     Active Substance: HUMAN IMMUNOGLOBULIN G
     Dosage: UNK
     Route: 058
  2. HIZENTRA [Suspect]
     Active Substance: HUMAN IMMUNOGLOBULIN G
     Dosage: UNK
     Route: 058
  3. EPINEPHRINE. [Concomitant]
     Active Substance: EPINEPHRINE
  4. SPIRIVA [Concomitant]
     Active Substance: TIOTROPIUM BROMIDE MONOHYDRATE
  5. XARELTO [Concomitant]
     Active Substance: RIVAROXABAN
  6. ACETAMINOPHEN. [Concomitant]
     Active Substance: ACETAMINOPHEN
  7. SINGULAIR [Concomitant]
     Active Substance: MONTELUKAST SODIUM
  8. LIPITOR [Concomitant]
     Active Substance: ATORVASTATIN CALCIUM
  9. VITAMIN D3 [Concomitant]
     Active Substance: CHOLECALCIFEROL
  10. DIPHENHYDRAMINE. [Concomitant]
     Active Substance: DIPHENHYDRAMINE
  11. LYRICA [Concomitant]
     Active Substance: PREGABALIN
  12. ZALEPLON. [Concomitant]
     Active Substance: ZALEPLON
  13. CALCIUM [Concomitant]
     Active Substance: CALCIUM
  14. LIDOCAINE. [Concomitant]
     Active Substance: LIDOCAINE
  15. FLUTICASONE FUROATE [Concomitant]
     Active Substance: FLUTICASONE FUROATE
  16. SYNTHROID [Concomitant]
     Active Substance: LEVOTHYROXINE SODIUM
  17. CLONAZEPAM. [Concomitant]
     Active Substance: CLONAZEPAM
  18. IRON [Concomitant]
     Active Substance: IRON
  19. MELATONIN [Concomitant]
     Active Substance: MELATONIN
  20. JANUMET [Concomitant]
     Active Substance: METFORMIN HYDROCHLORIDE\SITAGLIPTIN PHOSPHATE
  21. LEVEMIR [Concomitant]
     Active Substance: INSULIN DETEMIR
  22. OXYGEN. [Concomitant]
     Active Substance: OXYGEN
  23. HIZENTRA [Suspect]
     Active Substance: HUMAN IMMUNOGLOBULIN G
     Indication: IMMUNODEFICIENCY COMMON VARIABLE
     Dosage: 15 G, UNK
     Route: 058
     Dates: start: 20171018
  24. HIZENTRA [Suspect]
     Active Substance: HUMAN IMMUNOGLOBULIN G
     Dosage: UNK
     Route: 058
  25. AVODART [Concomitant]
     Active Substance: DUTASTERIDE
  26. VITAMIN B12 [Concomitant]
     Active Substance: CYANOCOBALAMIN

REACTIONS (2)
  - Cardiac operation [Unknown]
  - Cardiac disorder [Unknown]
